FAERS Safety Report 6435300-7 (Version None)
Quarter: 2009Q4

REPORT INFORMATION
  Report Type: 
  Country: None (occurrence: None)
  Receive Date: 20091110
  Receipt Date: 20091030
  Transmission Date: 20100525
  Serious: Yes (Hospitalization)
  Sender: FDA-Public Use
  Company Number: FR-GENENTECH-292292

PATIENT
  Sex: Female

DRUGS (8)
  1. RITUXIMAB [Suspect]
     Indication: B-CELL LYMPHOMA
     Dosage: 700 MG, UNK
     Route: 065
  2. RITUXIMAB [Suspect]
     Dosage: 500 MG, UNK
     Dates: start: 20081015
  3. ZEVALIN [Suspect]
     Indication: LYMPHOMA
     Dosage: UNK
     Dates: start: 20081015
  4. ADRIBLASTIN [Concomitant]
     Indication: DRUG USE FOR UNKNOWN INDICATION
     Dosage: 100 MG, UNK
     Dates: start: 20080410, end: 20080827
  5. ENDOXAN [Concomitant]
     Indication: DRUG USE FOR UNKNOWN INDICATION
     Dosage: 1500 MG, UNK
     Dates: start: 20080410, end: 20080827
  6. ONCOVIN [Concomitant]
     Indication: DRUG USE FOR UNKNOWN INDICATION
     Dosage: 2 MG, UNK
     Dates: start: 20080410, end: 20080827
  7. ZELITREX [Concomitant]
     Indication: DRUG USE FOR UNKNOWN INDICATION
  8. BACTRIM [Concomitant]
     Indication: DRUG USE FOR UNKNOWN INDICATION

REACTIONS (2)
  - PLATELET TRANSFUSION [None]
  - TRANSFUSION [None]
